FAERS Safety Report 9714933 (Version 1)
Quarter: 2013Q4

REPORT INFORMATION
  Report Type: Spontaneous
  Country: GB (occurrence: None)
  Receive Date: 20131125
  Receipt Date: 20131125
  Transmission Date: 20140711
  Serious: Yes (Other)
  Sender: FDA-Public Use
  Company Number: AUR-APL-2013-09727

PATIENT
  Age: 82 Year
  Sex: Female

DRUGS (2)
  1. FLUOXETINE (FLUOXETINE) [Suspect]
     Indication: DEPRESSION
     Route: 048
  2. HALDOL [Suspect]
     Indication: BIPOLAR DISORDER
     Dosage: 0.8929 MG  (25 MG, 1 IN 4 WK),  INTRAMUSCULAR
     Route: 030

REACTIONS (2)
  - Dizziness [None]
  - Orthostatic hypotension [None]
